FAERS Safety Report 25045443 (Version 1)
Quarter: 2025Q1

REPORT INFORMATION
  Report Type: Spontaneous
  Country: US (occurrence: None)
  Receive Date: 20250305
  Receipt Date: 20250305
  Transmission Date: 20250408
  Serious: Yes (Other)
  Sender: FDA-CTU
  Company Number: None

PATIENT
  Age: 58 Year
  Sex: Female
  Weight: 182 kg

DRUGS (1)
  1. ENBREL [Suspect]
     Active Substance: ETANERCEPT
     Indication: Rheumatoid arthritis
     Route: 058
     Dates: start: 20241219, end: 20250305

REACTIONS (4)
  - Paraesthesia oral [None]
  - Glossitis [None]
  - Peripheral swelling [None]
  - Injection site erythema [None]

NARRATIVE: CASE EVENT DATE: 20250305
